FAERS Safety Report 5894316-X (Version None)
Quarter: 2008Q3

REPORT INFORMATION
  Report Type: 
  Country: None (occurrence: None)
  Receive Date: 20080923
  Receipt Date: 20080424
  Transmission Date: 20090109
  Serious: No
  Sender: FDA-Public Use
  Company Number: US-ASTRAZENECA-2008UW08362

PATIENT
  Age: 11 Year
  Sex: Male
  Weight: 27.2 kg

DRUGS (5)
  1. SEROQUEL [Suspect]
     Indication: SLEEP DISORDER
     Route: 048
  2. SEROQUEL [Suspect]
     Indication: AGGRESSION
     Route: 048
  3. SEROQUEL [Suspect]
     Indication: APPETITE DISORDER
     Route: 048
  4. ADDERALL XR 30 [Concomitant]
  5. ADDERAL IR [Concomitant]

REACTIONS (2)
  - DECREASED APPETITE [None]
  - INSOMNIA [None]
